FAERS Safety Report 25273744 (Version 1)
Quarter: 2025Q2

REPORT INFORMATION
  Report Type: Spontaneous
  Country: US (occurrence: US)
  Receive Date: 20250506
  Receipt Date: 20250506
  Transmission Date: 20250716
  Serious: Yes (Other)
  Sender: AMGEN
  Company Number: US-AMGEN-USASP2025086123

PATIENT
  Age: 34 Year
  Sex: Female

DRUGS (4)
  1. RITUXIMAB [Suspect]
     Active Substance: RITUXIMAB
     Indication: Immunoglobulin G4 related disease
     Route: 065
  2. PREDNISONE [Suspect]
     Active Substance: PREDNISONE
     Indication: Focal segmental glomerulosclerosis
     Route: 065
  3. PREDNISONE [Suspect]
     Active Substance: PREDNISONE
     Indication: Serum sickness
     Route: 065
  4. CYCLOSPORINE [Concomitant]
     Active Substance: CYCLOSPORINE
     Indication: Focal segmental glomerulosclerosis

REACTIONS (8)
  - Immunoglobulin G4 related disease [Unknown]
  - Serum sickness [Recovered/Resolved]
  - Anaemia [Unknown]
  - Hypoalbuminaemia [Unknown]
  - Proteinuria [Unknown]
  - Haematuria [Unknown]
  - Drug effective for unapproved indication [Unknown]
  - Off label use [Unknown]
